FAERS Safety Report 4567674-6 (Version None)
Quarter: 2005Q1

REPORT INFORMATION
  Report Type: 
  Country: None (occurrence: None)
  Receive Date: 20050114
  Receipt Date: 20050114
  Transmission Date: 20050727
  Serious: No
  Sender: FDA-Public Use
  Company Number: None

PATIENT
  Age: 49 Year
  Sex: Male

DRUGS (7)
  1. VASOTEC [Suspect]
     Indication: HYPERTENSION
     Dosage: 20 MG PO (SEE IMAGE PARTIALLY ELEGIBLE)
     Route: 048
  2. CLONAZEPAM [Concomitant]
  3. AMITRIPTYLINE [Concomitant]
  4. BACLOFEN [Concomitant]
  5. BEXTRA [Concomitant]
  6. NEXIUM [Concomitant]
  7. KLONOPIN [Concomitant]

REACTIONS (2)
  - BLOOD PRESSURE INCREASED [None]
  - PHARMACEUTICAL PRODUCT COMPLAINT [None]
